FAERS Safety Report 21017673 (Version 2)
Quarter: 2022Q3

REPORT INFORMATION
  Report Type: Spontaneous
  Country: AR (occurrence: AR)
  Receive Date: 20220628
  Receipt Date: 20220830
  Transmission Date: 20221026
  Serious: Yes (Life-Threatening, Other)
  Sender: FDA-Public Use
  Company Number: AR-PFIZER INC-PV202200010457

PATIENT
  Age: 62 Year
  Sex: Female

DRUGS (1)
  1. SUTENT [Suspect]
     Active Substance: SUNITINIB MALATE
     Indication: Renal cell carcinoma
     Dosage: 50 MG, CYCLIC (DAILY, SCHEME 2/1 REST)
     Dates: start: 20210120

REACTIONS (5)
  - Intestinal resection [Not Recovered/Not Resolved]
  - Benign gastrointestinal neoplasm [Unknown]
  - Gallbladder disorder [Not Recovered/Not Resolved]
  - Neoplasm progression [Not Recovered/Not Resolved]
  - Blood pressure abnormal [Not Recovered/Not Resolved]

NARRATIVE: CASE EVENT DATE: 20220101
